FAERS Safety Report 21679824 (Version 2)
Quarter: 2022Q4

REPORT INFORMATION
  Report Type: Spontaneous
  Country: US (occurrence: None)
  Receive Date: 20221205
  Receipt Date: 20221212
  Transmission Date: 20230113
  Serious: Yes (Other)
  Sender: FDA-Public Use
  Company Number: US-MDD US Operations-MDD202211-003899

PATIENT
  Age: 66 Year
  Sex: Male

DRUGS (1)
  1. APOKYN [Suspect]
     Active Substance: APOMORPHINE HYDROCHLORIDE
     Indication: Parkinson^s disease
     Dosage: NOT PROVIDED
     Dates: start: 2019

REACTIONS (4)
  - Lung carcinoma cell type unspecified stage IV [Unknown]
  - Fluid retention [Unknown]
  - Somnolence [Unknown]
  - Therapeutic product effect variable [Unknown]
